FAERS Safety Report 5894852-6 (Version None)
Quarter: 2008Q3

REPORT INFORMATION
  Report Type: 
  Country: None (occurrence: None)
  Receive Date: 20080924
  Receipt Date: 20080722
  Transmission Date: 20090109
  Serious: Yes (Other)
  Sender: FDA-Public Use
  Company Number: US-ASTRAZENECA-2008UW13144

PATIENT
  Age: 281 Month
  Sex: Male

DRUGS (1)
  1. SEROQUEL [Suspect]
     Indication: MOOD SWINGS
     Dosage: 25MG, 50MG, 100MG + 200MG
     Route: 048
     Dates: start: 20041215, end: 20061012

REACTIONS (1)
  - TARDIVE DYSKINESIA [None]
